FAERS Safety Report 5788536-2 (Version None)
Quarter: 2008Q2

REPORT INFORMATION
  Report Type: 
  Country: None (occurrence: None)
  Receive Date: 20080625
  Receipt Date: 20080625
  Transmission Date: 20081010
  Serious: Yes (Hospitalization, Disabling)
  Sender: FDA-Public Use
  Company Number: None

PATIENT
  Sex: Female
  Weight: 78.9259 kg

DRUGS (1)
  1. ACTONEL [Suspect]
     Indication: RESORPTION BONE INCREASED
     Dosage: 35 MG 1 PER WK.
     Dates: start: 20080308

REACTIONS (2)
  - BACK PAIN [None]
  - FATIGUE [None]
